FAERS Safety Report 8783152 (Version 1)
Quarter: 2012Q4

REPORT INFORMATION
  Report Type: 
  Country: PL (occurrence: PL)
  Receive Date: 20120913
  Receipt Date: 20120913
  Transmission Date: 20130627
  Serious: Yes (Other)
  Sender: FDA-Public Use
  Company Number: PL-ARROW-2012-16094

PATIENT
  Age: 38 Year
  Sex: Female

DRUGS (1)
  1. TERBINAFINE [Suspect]
     Indication: ONYCHOMYCOSIS
     Dosage: 250 mg, daily
     Route: 048
     Dates: start: 20120824, end: 20120827

REACTIONS (1)
  - Dyspnoea [Recovered/Resolved]
